FAERS Safety Report 6450452-0 (Version None)
Quarter: 2009Q4

REPORT INFORMATION
  Report Type: 
  Country: None (occurrence: None)
  Receive Date: 20091123
  Receipt Date: 20091119
  Transmission Date: 20100525
  Serious: Yes (Hospitalization, Other)
  Sender: FDA-Public Use
  Company Number: CH-BAYER-200938193GPV

PATIENT
  Age: 84 Year
  Sex: Female
  Weight: 44 kg

DRUGS (6)
  1. AVELOX [Suspect]
     Indication: DRUG USE FOR UNKNOWN INDICATION
     Route: 065
     Dates: start: 20091008, end: 20091019
  2. MARCUMAR [Concomitant]
  3. PLAVIX [Concomitant]
     Dosage: TOTAL DAILY DOSE: 75 MG  UNIT DOSE: 75 MG
  4. CALCIMAGON-D3 [Concomitant]
     Dosage: 1-0-0
  5. XALATAN [Concomitant]
     Dosage: IN THE EVENING
  6. LORAZEPAM [Concomitant]
     Dosage: 1 MG IN RESERVE TO SLEEP

REACTIONS (6)
  - C-REACTIVE PROTEIN INCREASED [None]
  - ERYTHEMA [None]
  - HYPERSENSITIVITY [None]
  - PNEUMONIA [None]
  - PRURITUS [None]
  - RASH [None]
